FAERS Safety Report 4356438-4 (Version None)
Quarter: 2004Q2

REPORT INFORMATION
  Report Type: 
  Country: None (occurrence: None)
  Receive Date: 20040512
  Receipt Date: 20031007
  Transmission Date: 20050107
  Serious: No
  Sender: FDA-Public Use
  Company Number: US-GLAXOSMITHKLINE-A0429585A

PATIENT
  Age: 75 Year
  Sex: Male

DRUGS (2)
  1. RELAFEN [Suspect]
     Indication: ILL-DEFINED DISORDER
  2. VIOXX [Suspect]

REACTIONS (2)
  - DYSPEPSIA [None]
  - STOMACH DISCOMFORT [None]
